FAERS Safety Report 4504260-8 (Version None)
Quarter: 2004Q4

REPORT INFORMATION
  Report Type: 
  Country: None (occurrence: None)
  Receive Date: 20041116
  Receipt Date: 20041116
  Transmission Date: 20050328
  Serious: Yes (Hospitalization)
  Sender: FDA-Public Use
  Company Number: None

PATIENT
  Age: 81 Year
  Sex: Male
  Weight: 74.3899 kg

DRUGS (10)
  1. OXYBUTYNIN [Suspect]
     Dosage: 5 MG PO BID [REVIEWED 5/04-8/24/04]
     Route: 048
     Dates: start: 20040501, end: 20040824
  2. WARFARIN [Suspect]
     Indication: ATRIAL FIBRILLATION
     Dosage: 3.75 MON, 2.5 AFTER DAYS, REVEIWED 5/04
  3. HYDROCODONE 5/ACETAMINOPHEN [Concomitant]
  4. FELODIPINE SA [Concomitant]
  5. NITROGLYCERIN [Concomitant]
  6. SIMVASTATIN [Concomitant]
  7. HYDROCHLOROTHIAZIDE [Concomitant]
  8. LISINOPRIL [Concomitant]
  9. FLEET PREP KIT/PHOSPHOR SODA #3 [Concomitant]
  10. FINASTERIDE [Concomitant]

REACTIONS (3)
  - CONFUSIONAL STATE [None]
  - HAEMATURIA [None]
  - URINARY RETENTION [None]
